FAERS Safety Report 5125283-4 (Version None)
Quarter: 2006Q4

REPORT INFORMATION
  Report Type: 
  Country: None (occurrence: None)
  Receive Date: 20061006
  Receipt Date: 20060924
  Transmission Date: 20070319
  Serious: Yes (Hospitalization, Other)
  Sender: FDA-Public Use
  Company Number: 2006115572

PATIENT
  Sex: Male

DRUGS (2)
  1. LYRICA [Suspect]
  2. OXYCONTIN [Suspect]

REACTIONS (2)
  - BLOOD URINE PRESENT [None]
  - RENAL DISORDER [None]
